FAERS Safety Report 9734700 (Version 3)
Quarter: 2014Q1

REPORT INFORMATION
  Report Type: Spontaneous
  Country: US (occurrence: US)
  Receive Date: 20131206
  Receipt Date: 20140122
  Transmission Date: 20141002
  Serious: No
  Sender: FDA-Public Use
  Company Number: US-009507513-1312USA002745

PATIENT
  Age: 21 Year
  Sex: Female

DRUGS (2)
  1. NEXPLANON [Suspect]
     Indication: CONTRACEPTION
     Dosage: UNK
     Route: 059
     Dates: start: 20131004, end: 20131203
  2. NEXPLANON [Suspect]
     Dosage: UNK
     Route: 059

REACTIONS (3)
  - Implant site pain [Unknown]
  - Device expulsion [Recovered/Resolved]
  - Device kink [Recovered/Resolved]
